FAERS Safety Report 9305373 (Version 5)
Quarter: 2013Q3

REPORT INFORMATION
  Report Type: Spontaneous
  Country: JP (occurrence: JP)
  Receive Date: 20130523
  Receipt Date: 20130731
  Transmission Date: 20140515
  Serious: Yes (Hospitalization, Other)
  Sender: FDA-Public Use
  Company Number: JP-UCBSA-086433

PATIENT
  Age: 59 Year
  Sex: Male
  Weight: 48.1 kg

DRUGS (7)
  1. E KEPPRA [Suspect]
     Indication: EPILEPSY
     Dosage: DOSE STRENGTH: 500 MG
     Route: 048
     Dates: start: 20130501, end: 20130505
  2. ALEVIATIN [Concomitant]
     Indication: EPILEPSY
     Dosage: TOTAL DAILY DOSE-200MG
     Route: 048
     Dates: start: 20130425
  3. CELECOX [Concomitant]
     Indication: MUSCULOSKELETAL PAIN
     Dosage: TOTAL DAILY DOSE-300MG
     Route: 048
     Dates: start: 20130502, end: 20130507
  4. MUCOSATA [Concomitant]
     Indication: MUSCULOSKELETAL PAIN
     Dosage: TOTAL DAILY DOSE- 300MG
     Route: 048
     Dates: start: 20130502, end: 20130504
  5. LIPITOR [Concomitant]
     Indication: DYSLIPIDAEMIA
     Dosage: TOTAL DAILY DOSE-10MG
     Route: 048
  6. TAKEPRON [Concomitant]
     Indication: PROPHYLAXIS AGAINST GASTROINTESTINAL ULCER
     Dosage: TOTAL DAILY DOSE-30MG
     Route: 048
  7. CILOSTAZOLE [Concomitant]
     Indication: CEREBRAL INFARCTION
     Dosage: TOTAL DAILY DOSE-200MG
     Route: 048
     Dates: start: 201302

REACTIONS (2)
  - Generalised erythema [Recovering/Resolving]
  - Hepatic function abnormal [Recovered/Resolved]
